FAERS Safety Report 17196481 (Version 1)
Quarter: 2019Q4

REPORT INFORMATION
  Report Type: Spontaneous
  Country: CA (occurrence: CA)
  Receive Date: 20191224
  Receipt Date: 20191224
  Transmission Date: 20200122
  Serious: Yes (Other)
  Sender: FDA-Public Use
  Company Number: CA-PFIZER INC-2018210874

PATIENT
  Age: 55 Year
  Sex: Female

DRUGS (6)
  1. XELJANZ [Suspect]
     Active Substance: TOFACITINIB CITRATE
     Indication: RHEUMATOID ARTHRITIS
     Dosage: 5 MG, 2X/DAY
     Route: 048
     Dates: start: 20180609, end: 20180705
  2. XELJANZ [Suspect]
     Active Substance: TOFACITINIB CITRATE
     Dosage: 5 MG, DAILY
     Route: 048
     Dates: start: 201807, end: 2019
  3. XELJANZ XR [Concomitant]
     Active Substance: TOFACITINIB CITRATE
     Indication: RHEUMATOID ARTHRITIS
     Dosage: 11 MG, 1X/DAY
     Route: 048
     Dates: start: 2019, end: 201911
  4. FIORINAL [CODEINE PHOSPHATE;PARACETAMOL;SALICYLAMIDE] [Concomitant]
     Indication: PAIN
     Dosage: UNK
  5. FIORINAL [CODEINE PHOSPHATE;PARACETAMOL;SALICYLAMIDE] [Concomitant]
     Indication: MIGRAINE
  6. TYLENOL WITH CODEINE [Concomitant]
     Active Substance: ACETAMINOPHEN\CODEINE PHOSPHATE
     Dosage: UNK

REACTIONS (15)
  - Pain in jaw [Unknown]
  - Fatigue [Not Recovered/Not Resolved]
  - Infection [Unknown]
  - Tension headache [Unknown]
  - Varicose vein [Unknown]
  - Peripheral swelling [Unknown]
  - Drug ineffective [Unknown]
  - Productive cough [Unknown]
  - Hyperventilation [Unknown]
  - Wheezing [Unknown]
  - Condition aggravated [Unknown]
  - Malaise [Unknown]
  - Pain in extremity [Not Recovered/Not Resolved]
  - Irritability [Unknown]
  - Joint dislocation [Unknown]

NARRATIVE: CASE EVENT DATE: 2018
